FAERS Safety Report 10009888 (Version 2)
Quarter: 2014Q1

REPORT INFORMATION
  Report Type: Spontaneous
  Country: US (occurrence: US)
  Receive Date: 20140312
  Receipt Date: 20140312
  Transmission Date: 20141002
  Serious: Yes (Other)
  Sender: FDA-Public Use
  Company Number: US-INCYTE CORPORATION-2013IN000144

PATIENT
  Sex: Female
  Weight: 73.02 kg

DRUGS (13)
  1. JAKAFI [Suspect]
     Indication: MYELOFIBROSIS
     Dosage: 10 MG, BID
     Route: 048
     Dates: start: 20120813, end: 201210
  2. JAKAFI [Suspect]
     Dosage: 15 MG, BID
     Route: 048
     Dates: start: 201210, end: 20130110
  3. JAKAFI [Suspect]
     Dosage: 15 MG, BID
     Route: 048
     Dates: start: 2013
  4. SYNTHROID [Concomitant]
  5. LOTREL [Concomitant]
  6. HYDROCHLOROTHIAZIDE [Concomitant]
  7. ASPIRIN [Concomitant]
     Dosage: 81 MG
  8. VITAMIN E [Concomitant]
  9. CALCIUM [Concomitant]
  10. ALLOPURINOL [Concomitant]
  11. ZYRTEC [Concomitant]
  12. XANAX [Concomitant]
  13. ALBUTEROL [Concomitant]

REACTIONS (2)
  - Platelet count decreased [Recovering/Resolving]
  - Haemoglobin decreased [Recovering/Resolving]
